FAERS Safety Report 4909967-6 (Version None)
Quarter: 2006Q1

REPORT INFORMATION
  Report Type: 
  Country: None (occurrence: None)
  Receive Date: 20060208
  Receipt Date: 20060131
  Transmission Date: 20060701
  Serious: Yes (Other)
  Sender: FDA-Public Use
  Company Number: 2006015021

PATIENT
  Age: 60 Year
  Sex: Female
  Weight: 65 kg

DRUGS (9)
  1. PREGABALIN (PREGABALIN) [Suspect]
     Indication: FIBROMYALGIA
     Dosage: 150 MG (75 MG, 2 IN 1 D), ORAL
     Route: 048
     Dates: start: 20051120, end: 20051120
  2. LIXACOL (MESALAZINE) [Concomitant]
  3. IBUPROFEN [Concomitant]
  4. OMEPRAZOLE [Concomitant]
  5. TERBUTALINE SULFATE [Concomitant]
  6. LEVOTHROID [Concomitant]
  7. PULMICORT [Concomitant]
  8. VENTOLIN [Concomitant]
  9. MESALAZINE (MESALAZINE0 [Concomitant]

REACTIONS (2)
  - BRONCHOSPASM [None]
  - DRY MOUTH [None]
